FAERS Safety Report 9097256 (Version 1)
Quarter: 2013Q1

REPORT INFORMATION
  Report Type: Report from Study
  Country: CA (occurrence: CA)
  Receive Date: 20130212
  Receipt Date: 20130212
  Transmission Date: 20140127
  Serious: Yes (Hospitalization, Other)
  Sender: FDA-Public Use
  Company Number: CA-JNJFOC-20130111305

PATIENT
  Age: 19 None
  Sex: Male
  Weight: 70 kg

DRUGS (5)
  1. REMICADE [Suspect]
     Indication: CROHN^S DISEASE
     Dosage: START DATE: ^15-DEC-2013^ [SIC]
     Route: 042
  2. RISPERIDONE [Concomitant]
     Route: 065
  3. CELEXA [Concomitant]
     Route: 065
  4. RITALIN [Concomitant]
     Route: 065
  5. ALL OTHER THERAPEUTICS [Concomitant]
     Route: 065

REACTIONS (2)
  - Vomiting [Not Recovered/Not Resolved]
  - Clostridium difficile infection [Not Recovered/Not Resolved]
